FAERS Safety Report 9284996 (Version 2)
Quarter: 2013Q2

REPORT INFORMATION
  Report Type: Report from Study
  Country: CA (occurrence: CA)
  Receive Date: 20130513
  Receipt Date: 20130627
  Transmission Date: 20140414
  Serious: Yes (Death)
  Sender: FDA-Public Use
  Company Number: PHHY2012CA070194

PATIENT
  Age: 94 Year
  Sex: Female

DRUGS (9)
  1. ACLASTA [Suspect]
     Indication: OSTEOPOROSIS
     Dosage: 5 MG/ 100 ML
     Route: 042
     Dates: start: 20110812
  2. ACLASTA [Suspect]
     Dosage: 5 MG / 100 ML
     Route: 042
     Dates: start: 20120807
  3. ASA [Concomitant]
     Dosage: 81 MG, UNK
  4. BISOPROLOL [Concomitant]
     Dosage: UNK UKN, UNK
  5. VITAMIN D3 [Concomitant]
     Dosage: UNK UKN, UNK
  6. VITAMIN C [Concomitant]
     Dosage: UNK UKN, UNK
  7. TRAVATAN [Concomitant]
     Dosage: UNK UKN, UNK
  8. SYNTHROID [Concomitant]
     Dosage: UNK UKN, UNK
  9. TRUSOPT [Concomitant]
     Dosage: UNK UKN, UNK

REACTIONS (3)
  - Haemorrhagic stroke [Fatal]
  - Haemorrhage intracranial [Fatal]
  - Poor venous access [Not Recovered/Not Resolved]
